FAERS Safety Report 10064649 (Version 1)
Quarter: 2014Q2

REPORT INFORMATION
  Report Type: Spontaneous
  Country: US (occurrence: US)
  Receive Date: 20140408
  Receipt Date: 20140408
  Transmission Date: 20141212
  Serious: Yes (Death, Hospitalization)
  Sender: FDA-Public Use
  Company Number: US-NOVOPROD-405198

PATIENT
  Age: 5 Year
  Sex: Female

DRUGS (1)
  1. NORDITROPIN FLEXPRO [Suspect]
     Indication: GROWTH HORMONE DEFICIENCY
     Dosage: UNK
     Route: 058
     Dates: start: 201401

REACTIONS (1)
  - Acute hepatic failure [Fatal]
